FAERS Safety Report 12967208 (Version 1)
Quarter: 2016Q4

REPORT INFORMATION
  Report Type: Spontaneous
  Country: FR (occurrence: FR)
  Receive Date: 20161123
  Receipt Date: 20161123
  Transmission Date: 20170207
  Serious: Yes (Hospitalization)
  Sender: FDA-Public Use
  Company Number: FR-ASTRAZENECA-2016SF23640

PATIENT
  Age: 2 Day
  Sex: Female

DRUGS (3)
  1. XEROQUEL [Suspect]
     Active Substance: QUETIAPINE FUMARATE
     Route: 064
     Dates: end: 20160915
  2. EFFEXOR [Suspect]
     Active Substance: VENLAFAXINE HYDROCHLORIDE
     Route: 064
     Dates: end: 20160915
  3. SERESTA [Suspect]
     Active Substance: OXAZEPAM
     Route: 064
     Dates: end: 20160915

REACTIONS (3)
  - Seizure [Recovered/Resolved]
  - Cyanosis [Recovered/Resolved]
  - Apnoea [Recovered/Resolved]

NARRATIVE: CASE EVENT DATE: 20160917
